FAERS Safety Report 7842082-0 (Version None)
Quarter: 2011Q4

REPORT INFORMATION
  Report Type: 
  Country: None (occurrence: None)
  Receive Date: 20111025
  Receipt Date: 20111021
  Transmission Date: 20120403
  Serious: Yes (Death, Other)
  Sender: FDA-Public Use
  Company Number: PHHY2011IN93289

PATIENT
  Age: 74 Year
  Sex: Female

DRUGS (1)
  1. ZOLEDRONOC ACID [Suspect]
     Dosage: 5MG/100ML
     Route: 042
     Dates: start: 20110914

REACTIONS (5)
  - PAIN [None]
  - DEATH [None]
  - HYPOAESTHESIA [None]
  - MUSCLE SPASMS [None]
  - HAEMATEMESIS [None]
